FAERS Safety Report 7153712-3 (Version None)
Quarter: 2010Q4

REPORT INFORMATION
  Report Type: 
  Country: None (occurrence: None)
  Receive Date: 20101213
  Receipt Date: 20101207
  Transmission Date: 20110411
  Serious: Yes (Hospitalization)
  Sender: FDA-Public Use
  Company Number: AU-MERCK-1012USA01509

PATIENT
  Age: 82 Year
  Sex: Male

DRUGS (5)
  1. ZETIA [Suspect]
     Indication: METABOLIC DISORDER
     Route: 048
  2. LIPITOR [Suspect]
     Indication: METABOLIC DISORDER
     Route: 048
  3. COVERSYL (PERINDOPRIL ARGININE) [Concomitant]
     Route: 065
  4. FUROSEMIDE [Concomitant]
     Route: 065
  5. SPIRACTIN (PIMECLONE HYDROCHLORIDE) [Concomitant]
     Route: 065

REACTIONS (3)
  - ARTHRALGIA [None]
  - MUSCLE SPASMS [None]
  - MUSCULAR WEAKNESS [None]
